FAERS Safety Report 8956941 (Version 1)
Quarter: 2012Q4

REPORT INFORMATION
  Report Type: 
  Country: IN (occurrence: IN)
  Receive Date: 20121211
  Receipt Date: 20121211
  Transmission Date: 20130627
  Serious: Yes (Other)
  Sender: FDA-Public Use
  Company Number: PHHY2012IN082908

PATIENT
  Age: 67 Year
  Sex: Female

DRUGS (1)
  1. EFETRAN [Suspect]
     Dosage: 145.6 mg, BID
     Route: 048

REACTIONS (4)
  - Renal failure acute [Recovered/Resolved]
  - Anuria [Recovered/Resolved]
  - Oedema peripheral [Recovered/Resolved]
  - Swelling face [Recovered/Resolved]
